FAERS Safety Report 9870262 (Version 2)
Quarter: 2014Q1

REPORT INFORMATION
  Report Type: Spontaneous
  Country: US (occurrence: US)
  Receive Date: 20140205
  Receipt Date: 20140205
  Transmission Date: 20141002
  Serious: Yes (Other)
  Sender: FDA-Public Use
  Company Number: US-SA-2013SA135207

PATIENT
  Age: 42 Year
  Sex: Male
  Weight: 165.1 kg

DRUGS (28)
  1. HECTOROL [Suspect]
     Indication: HYPERPARATHYROIDISM SECONDARY
     Dosage: DOSE:2 MICROGRAM(S)/MILLILITRE
     Route: 065
     Dates: start: 20131220, end: 20131220
  2. HECTOROL [Suspect]
     Indication: HYPERPARATHYROIDISM SECONDARY
     Dosage: DOSE: 4MCG/2ML
     Route: 042
     Dates: start: 20131220, end: 20131220
  3. HECTOROL [Suspect]
     Indication: HYPERPARATHYROIDISM SECONDARY
     Dosage: DOSE:2 MICROGRAM(S)/MILLILITRE
     Route: 065
     Dates: start: 20131222, end: 20131222
  4. AMLODIPINE [Concomitant]
     Route: 048
     Dates: start: 20121026, end: 20130525
  5. ATORVASTATIN [Concomitant]
     Route: 048
     Dates: start: 20130312, end: 20130525
  6. BACTRIM [Concomitant]
  7. CLONIDINE [Concomitant]
     Route: 048
  8. FLUTICASONE [Concomitant]
     Dates: start: 20130627, end: 20130627
  9. LANTUS SOLOSTAR [Concomitant]
     Route: 058
  10. MYCOPHENOLATE SODIUM [Concomitant]
     Route: 048
  11. NOVOLOG [Concomitant]
     Dosage: DOSE:5 UNIT(S)
  12. OXYCODONE [Concomitant]
     Indication: PAIN
     Route: 048
  13. PREDNISONE [Concomitant]
  14. PROGRAF [Concomitant]
     Route: 048
  15. PROTONIX [Concomitant]
     Route: 048
  16. RENVELA [Concomitant]
     Route: 048
  17. TOPROL XL [Concomitant]
     Route: 048
  18. ZYRTEC [Concomitant]
     Route: 048
     Dates: end: 20140121
  19. TYLENOL [Concomitant]
     Route: 048
     Dates: end: 20140121
  20. SENSIPAR [Concomitant]
     Route: 048
     Dates: end: 20140121
  21. OMEPRAZOLE [Concomitant]
     Route: 048
     Dates: start: 20130530, end: 20140121
  22. MONTELUKAST [Concomitant]
     Route: 048
     Dates: start: 20130530, end: 20140121
  23. LOSARTAN [Concomitant]
     Route: 048
     Dates: start: 20130610, end: 20140121
  24. BYSTOLIC [Concomitant]
     Route: 048
     Dates: start: 20130530, end: 20140121
  25. EPOGEN [Concomitant]
     Indication: ANAEMIA
     Dosage: DOSE:14000 UNIT(S)
  26. VALCYTE [Concomitant]
     Route: 048
  27. RENA-VITE [Concomitant]
     Dates: start: 20121227, end: 20140121
  28. HEPARIN [Concomitant]

REACTIONS (15)
  - Hypersensitivity [Recovered/Resolved]
  - Musculoskeletal stiffness [Recovered/Resolved]
  - Chest discomfort [Recovered/Resolved]
  - Dyspnoea [Recovered/Resolved]
  - Headache [Recovered/Resolved]
  - Chest discomfort [Recovered/Resolved]
  - Cough [Recovered/Resolved]
  - Mobility decreased [Recovered/Resolved]
  - Myalgia [Recovered/Resolved]
  - Back pain [Recovered/Resolved]
  - Asthenia [Unknown]
  - Fatigue [Unknown]
  - Arthralgia [Unknown]
  - Nausea [Unknown]
  - Oedema peripheral [Unknown]
